FAERS Safety Report 7946256-X (Version None)
Quarter: 2011Q4

REPORT INFORMATION
  Report Type: 
  Country: None (occurrence: None)
  Receive Date: 20111129
  Receipt Date: 20111013
  Transmission Date: 20120403
  Serious: Yes (Other)
  Sender: FDA-Public Use
  Company Number: DE-JNJFOC-20111111725

PATIENT
  Sex: Male
  Weight: 68 kg

DRUGS (6)
  1. AMITRIPTYLINE HCL [Interacting]
     Indication: PRODUCT USED FOR UNKNOWN INDICATION
     Dosage: 50 MG AND 100MG CAPSULES, 50-150MG, PREVIOUSLY REPORTED AS 100MG-150MG
     Route: 048
     Dates: start: 20100901, end: 20110725
  2. PANTOPRAZOLE [Concomitant]
     Indication: GASTROOESOPHAGEAL REFLUX DISEASE
     Route: 048
  3. METOCLOPRAMIDE [Interacting]
     Indication: PRODUCT USED FOR UNKNOWN INDICATION
     Dosage: 4MG/1ML ORAL DROPS, 30 MG/DAY
     Route: 048
     Dates: start: 20100901, end: 20110725
  4. LOSARTAN POTASSIUM AND HYDROCHLOROTHIAZIDE [Concomitant]
     Indication: HYPERTENSION
     Route: 048
  5. PALEXIA RETARD [Suspect]
     Indication: PRODUCT USED FOR UNKNOWN INDICATION
     Route: 048
     Dates: start: 20110211, end: 20110725
  6. SIMVASTATIN [Concomitant]
     Indication: HYPERCHOLESTEROLAEMIA
     Route: 048

REACTIONS (8)
  - DRUG INTERACTION [None]
  - PROTEINURIA [None]
  - MASKED FACIES [None]
  - SEROTONIN SYNDROME [None]
  - ELECTROCARDIOGRAM QT PROLONGED [None]
  - MYOGLOBINAEMIA [None]
  - DYSPNOEA [None]
  - EXTRAPYRAMIDAL DISORDER [None]
